FAERS Safety Report 12764967 (Version 4)
Quarter: 2017Q2

REPORT INFORMATION
  Report Type: Spontaneous
  Country: JP (occurrence: JP)
  Receive Date: 20160921
  Receipt Date: 20170404
  Transmission Date: 20170830
  Serious: Yes (Life-Threatening, Hospitalization, Other)
  Sender: FDA-Public Use
  Company Number: JP-BRISTOL-MYERS SQUIBB COMPANY-BMS-2016-076972

PATIENT
  Age: 86 Year
  Sex: Female

DRUGS (5)
  1. ELIQUIS [Suspect]
     Active Substance: APIXABAN
     Indication: PRODUCT USED FOR UNKNOWN INDICATION
     Dosage: 2.5 MG, QD
     Route: 048
     Dates: start: 20160905
  2. ONGLYZA [Concomitant]
     Active Substance: SAXAGLIPTIN HYDROCHLORIDE
     Indication: DIABETES MELLITUS
     Dosage: 2.5 MG, QD
     Route: 048
     Dates: start: 20160406
  3. ALTAT [Concomitant]
     Active Substance: ROXATIDINE ACETATE HYDROCHLORIDE
     Indication: ABDOMINAL PAIN UPPER
     Dosage: 37.5 MG, BID
     Route: 048
     Dates: start: 20151002
  4. ELIQUIS [Suspect]
     Active Substance: APIXABAN
     Indication: CEREBROVASCULAR ACCIDENT PROPHYLAXIS
     Dosage: 2.5 MG, QD
     Route: 048
     Dates: start: 20160701
  5. CARNACULIN                         /00088101/ [Concomitant]
     Active Substance: KALLIDINOGENASE
     Indication: ABDOMINAL PAIN UPPER
     Dosage: 50 MG, TID
     Route: 048
     Dates: start: 20120125

REACTIONS (7)
  - Colectomy [Unknown]
  - Sigmoidectomy [Unknown]
  - Prescribed underdose [Unknown]
  - Haematochezia [Recovered/Resolved]
  - Colon cancer [Recovered/Resolved]
  - Large intestinal haemorrhage [Recovered/Resolved]
  - Anaemia [Recovered/Resolved]

NARRATIVE: CASE EVENT DATE: 20160818
